FAERS Safety Report 4730246-4 (Version None)
Quarter: 2005Q3

REPORT INFORMATION
  Report Type: 
  Country: None (occurrence: None)
  Receive Date: 20050728
  Receipt Date: 20050718
  Transmission Date: 20060218
  Serious: Yes (Hospitalization, Disabling, Other)
  Sender: FDA-Public Use
  Company Number: DEU-2005-0001529

PATIENT
  Age: 68 Year
  Sex: Male

DRUGS (12)
  1. OXYCODONE HCL [Suspect]
     Indication: BACK PAIN
     Dosage: 80 MG, TID, ORAL
     Route: 048
  2. ANTIEPILEPTICS [Concomitant]
  3. BAYMYCARD (NISOLDIPINE) [Concomitant]
  4. ISOSORBIDE DINITRATE [Concomitant]
  5. ATORVASTATIN CALCIUM [Concomitant]
  6. PANTOPRAZOLE SODIUM [Concomitant]
  7. NITROLINGUAL-SPRAY N (GLYCERYL TRINITRATE) [Concomitant]
  8. NEURONTIN [Concomitant]
  9. ANALGESICS [Concomitant]
  10. NEXIUM [Concomitant]
  11. METOCLOPRAMIDE [Concomitant]
  12. MORPHINE SULFATE [Concomitant]

REACTIONS (3)
  - FAECALITH [None]
  - ILEUS [None]
  - PERITONITIS [None]
